FAERS Safety Report 14269145 (Version 1)
Quarter: 2017Q4

REPORT INFORMATION
  Report Type: Spontaneous
  Country: FR (occurrence: FR)
  Receive Date: 20171211
  Receipt Date: 20171211
  Transmission Date: 20180321
  Serious: Yes (Hospitalization)
  Sender: FDA-Public Use
  Company Number: FR-OTSUKA-2016_029013

PATIENT
  Age: 38 Year
  Sex: Male

DRUGS (10)
  1. LOXAPAC [Concomitant]
     Active Substance: LOXAPINE SUCCINATE
     Dosage: 300 MG, QD
     Route: 048
  2. LOXAPAC [Concomitant]
     Active Substance: LOXAPINE SUCCINATE
     Dosage: 75 MG, QD
     Route: 048
     Dates: start: 20161114
  3. LOXAPAC [Concomitant]
     Active Substance: LOXAPINE SUCCINATE
     Dosage: 200 MG, QD
     Route: 048
     Dates: start: 20161128
  4. RISPERDAL [Concomitant]
     Active Substance: RISPERIDONE
     Indication: PRODUCT USED FOR UNKNOWN INDICATION
     Dosage: UNK
     Route: 065
  5. ABILIFY [Suspect]
     Active Substance: ARIPIPRAZOLE
     Indication: PRODUCT USED FOR UNKNOWN INDICATION
     Dosage: 25 MG, QD
     Route: 048
     Dates: start: 20160926, end: 20161021
  6. ABILIFY MAINTENA [Suspect]
     Active Substance: ARIPIPRAZOLE
     Indication: BIPOLAR DISORDER
     Dosage: 400 MG, ONCE MONTHLY
     Route: 030
     Dates: start: 20161007, end: 201611
  7. LOXAPAC [Concomitant]
     Active Substance: LOXAPINE SUCCINATE
     Indication: BIPOLAR DISORDER
     Dosage: 50 MG, QD
     Route: 048
     Dates: start: 20161027, end: 20161114
  8. DEPAKOTE [Concomitant]
     Active Substance: DIVALPROEX SODIUM
     Indication: BIPOLAR DISORDER
     Dosage: 750 MG, QD
     Route: 048
     Dates: start: 20160805, end: 20161116
  9. ABILIFY [Suspect]
     Active Substance: ARIPIPRAZOLE
     Indication: BIPOLAR DISORDER
     Dosage: 20 MG, QD
     Route: 048
     Dates: start: 20160805, end: 20160926
  10. ABILIFY [Suspect]
     Active Substance: ARIPIPRAZOLE
     Dosage: 25 MG, QD
     Route: 048
     Dates: start: 20161114

REACTIONS (2)
  - Drug ineffective [Recovering/Resolving]
  - Psychotic disorder [Unknown]

NARRATIVE: CASE EVENT DATE: 20161021
